FAERS Safety Report 10479843 (Version 1)
Quarter: 2014Q3

REPORT INFORMATION
  Report Type: Report from Study
  Country: PH (occurrence: PH)
  Receive Date: 20140928
  Receipt Date: 20140928
  Transmission Date: 20150326
  Serious: Yes (Hospitalization)
  Sender: FDA-Public Use
  Company Number: US-BRISTOL-MYERS SQUIBB COMPANY-21427885

PATIENT
  Sex: Male

DRUGS (1)
  1. FORXIGA [Suspect]
     Active Substance: DAPAGLIFLOZIN
     Indication: TYPE 2 DIABETES MELLITUS
     Dates: start: 20140820

REACTIONS (2)
  - Myocardial infarction [Unknown]
  - Rash [Unknown]

NARRATIVE: CASE EVENT DATE: 20140914
